FAERS Safety Report 16431028 (Version 1)
Quarter: 2019Q2

REPORT INFORMATION
  Report Type: Spontaneous
  Country: US (occurrence: US)
  Receive Date: 20190614
  Receipt Date: 20190614
  Transmission Date: 20190711
  Serious: Yes (Death)
  Sender: FDA-Public Use
  Company Number: US-TEVA-2019-US-1061664

PATIENT
  Sex: Female

DRUGS (1)
  1. LIDOCAINE TOPICAL 5% PATCH [Suspect]
     Active Substance: LIDOCAINE
     Indication: BONE PAIN
     Route: 061

REACTIONS (1)
  - Death [Fatal]
